FAERS Safety Report 10729566 (Version 1)
Quarter: 2015Q1

REPORT INFORMATION
  Report Type: Spontaneous
  Country: SE (occurrence: SE)
  Receive Date: 20150122
  Receipt Date: 20150122
  Transmission Date: 20150721
  Serious: Yes (Other)
  Sender: FDA-Public Use
  Company Number: SE-TEVA-534640ISR

PATIENT
  Age: 57 Year
  Sex: Female

DRUGS (1)
  1. ATENOLOL TEVA 25 MG FILMDRAGERAD TABLETT [Suspect]
     Active Substance: ATENOLOL
     Indication: HEART RATE INCREASED
     Route: 048
     Dates: start: 20141013, end: 20141013

REACTIONS (2)
  - Swollen tongue [Recovered/Resolved]
  - Dysphagia [Recovered/Resolved]

NARRATIVE: CASE EVENT DATE: 20141013
